FAERS Safety Report 8556530-4 (Version None)
Quarter: 2012Q3

REPORT INFORMATION
  Report Type: 
  Country: None (occurrence: None)
  Receive Date: 20120801
  Receipt Date: 20120723
  Transmission Date: 20120928
  Serious: Yes (Hospitalization, Other)
  Sender: FDA-Public Use
  Company Number: US-BAYER-2011-075157

PATIENT
  Age: 28 Year
  Sex: Female

DRUGS (3)
  1. NEXIUM [Concomitant]
  2. DROSPIRENONE AND ETHINYL ESTRADIOL [Suspect]
     Indication: CONTRACEPTION
     Dosage: UNK
     Dates: start: 20090101, end: 20100101
  3. PROTONIX [Concomitant]
     Route: 048

REACTIONS (6)
  - OVARIAN DISORDER [None]
  - INJURY [None]
  - OVARIAN CYST [None]
  - PAIN [None]
  - CHOLECYSTITIS CHRONIC [None]
  - GALLBLADDER INJURY [None]
